FAERS Safety Report 12682609 (Version 1)
Quarter: 2016Q3

REPORT INFORMATION
  Report Type: Spontaneous
  Country: US (occurrence: US)
  Receive Date: 20160825
  Receipt Date: 20160825
  Transmission Date: 20161109
  Serious: No
  Sender: FDA-Public Use
  Company Number: US-GLENMARK PHARMACEUTICALS INC, USA.-2016GMK023751

PATIENT

DRUGS (1)
  1. BETAMETHASONE DIPROPIONATE/CLOTRIMAZOLE [Suspect]
     Active Substance: BETAMETHASONE DIPROPIONATE\CLOTRIMAZOLE
     Indication: EXOSTOSIS
     Dosage: UNK UNK, BID
     Route: 065

REACTIONS (1)
  - Drug ineffective for unapproved indication [Unknown]
